FAERS Safety Report 6008029-7 (Version None)
Quarter: 2008Q4

REPORT INFORMATION
  Report Type: 
  Country: None (occurrence: None)
  Receive Date: 20081217
  Receipt Date: 20081211
  Transmission Date: 20090506
  Serious: Yes (Hospitalization)
  Sender: FDA-Public Use
  Company Number: IT-ABBOTT-08P-083-0490351-00

PATIENT
  Sex: Female

DRUGS (1)
  1. LEUPROLIDE ACETATE [Suspect]
     Indication: UTERINE LEIOMYOMA
     Route: 030
     Dates: start: 20081120, end: 20081121

REACTIONS (4)
  - ABDOMINAL PAIN UPPER [None]
  - HOT FLUSH [None]
  - PARAESTHESIA [None]
  - TACHYCARDIA [None]
